FAERS Safety Report 13317626 (Version 1)
Quarter: 2017Q1

REPORT INFORMATION
  Report Type: Spontaneous
  Country: US (occurrence: US)
  Receive Date: 20170309
  Receipt Date: 20170309
  Transmission Date: 20170428
  Serious: No
  Sender: FDA-Public Use
  Company Number: None

PATIENT
  Age: 2 Year
  Sex: Male
  Weight: 13 kg

DRUGS (8)
  1. IMATINIB [Suspect]
     Active Substance: IMATINIB
     Indication: PULMONARY VEIN STENOSIS
     Route: 048
     Dates: start: 20170301, end: 20170306
  2. AMOXICILLIN. [Concomitant]
     Active Substance: AMOXICILLIN
  3. SPIRONOLACTONE. [Concomitant]
     Active Substance: SPIRONOLACTONE
  4. AVASTIN [Concomitant]
     Active Substance: BEVACIZUMAB
  5. ONDANSETRON [Concomitant]
     Active Substance: ONDANSETRON
  6. CYPROHEPTADINE. [Concomitant]
     Active Substance: CYPROHEPTADINE
  7. FONDAPARINUX [Concomitant]
     Active Substance: FONDAPARINUX
  8. FUROSEMIDE. [Concomitant]
     Active Substance: FUROSEMIDE

REACTIONS (5)
  - Retching [None]
  - Vomiting [None]
  - Drug withdrawal syndrome [None]
  - Nausea [None]
  - Product substitution issue [None]

NARRATIVE: CASE EVENT DATE: 20170306
